FAERS Safety Report 5603136-2 (Version None)
Quarter: 2008Q1

REPORT INFORMATION
  Report Type: 
  Country: None (occurrence: None)
  Receive Date: 20080125
  Receipt Date: 20080115
  Transmission Date: 20080703
  Serious: Yes (Hospitalization, Other)
  Sender: FDA-Public Use
  Company Number: NO-PFIZER INC-2008006026

PATIENT
  Sex: Female

DRUGS (6)
  1. LIPITOR [Suspect]
     Indication: HYPERCHOLESTEROLAEMIA
     Route: 048
     Dates: start: 20011001, end: 20040905
  2. SALAZOPYRIN [Concomitant]
  3. ATACAND [Concomitant]
     Route: 048
  4. CLARITIN [Concomitant]
     Route: 048
  5. BECOTIDE NASAL [Concomitant]
  6. PARACETAMOL [Concomitant]

REACTIONS (5)
  - MUSCLE ATROPHY [None]
  - MUSCULAR WEAKNESS [None]
  - MYALGIA [None]
  - POLYARTHRITIS [None]
  - POLYMYOSITIS [None]
